FAERS Safety Report 4980678-4 (Version None)
Quarter: 2006Q2

REPORT INFORMATION
  Report Type: 
  Country: None (occurrence: None)
  Receive Date: 20060424
  Receipt Date: 20050113
  Transmission Date: 20061013
  Serious: Yes (Hospitalization, Disabling)
  Sender: FDA-Public Use
  Company Number: US-MERCK-0501USA02245

PATIENT
  Age: 38 Year
  Sex: Male
  Weight: 62 kg

DRUGS (1)
  1. VIOXX [Suspect]
     Indication: BACK INJURY
     Route: 048
     Dates: start: 19970201, end: 20040901

REACTIONS (9)
  - ACQUIRED IMMUNODEFICIENCY SYNDROME [None]
  - CORONARY ARTERY DISEASE [None]
  - DEHYDRATION [None]
  - HEADACHE [None]
  - HIV INFECTION [None]
  - MYOCARDIAL INFARCTION [None]
  - NAUSEA [None]
  - THROMBOSIS [None]
  - VOMITING [None]
